FAERS Safety Report 5120588-5 (Version None)
Quarter: 2006Q4

REPORT INFORMATION
  Report Type: 
  Country: None (occurrence: None)
  Receive Date: 20061004
  Receipt Date: 20060324
  Transmission Date: 20070319
  Serious: Yes (Hospitalization)
  Sender: FDA-Public Use
  Company Number: 2006AP01471

PATIENT
  Age: 27456 Day
  Sex: Male
  Weight: 73.8 kg

DRUGS (11)
  1. CRESTOR [Suspect]
     Indication: HYPERCHOLESTEROLAEMIA
     Route: 048
     Dates: start: 20060210, end: 20060310
  2. CRESTOR [Suspect]
     Route: 048
     Dates: start: 20060508
  3. HERBRESSER R [Concomitant]
     Indication: HYPERTENSION
     Route: 048
  4. RENIVACE [Concomitant]
     Indication: HYPERTENSION
     Route: 048
  5. BUFFERIN [Concomitant]
     Indication: CORONARY ARTERY BYPASS
     Route: 048
  6. ARTIST [Concomitant]
     Indication: CORONARY ARTERY BYPASS
     Route: 048
  7. LASIX [Concomitant]
     Indication: CORONARY ARTERY BYPASS
     Route: 048
  8. NITOROL R [Concomitant]
     Indication: CORONARY ARTERY BYPASS
     Route: 048
  9. ZANTAC [Concomitant]
     Route: 048
  10. INSULIN [Concomitant]
  11. BETA-BLOCKERS [Concomitant]

REACTIONS (7)
  - CARDIAC FAILURE [None]
  - FIBRIN D DIMER INCREASED [None]
  - MYOCARDIAL ISCHAEMIA [None]
  - OEDEMA [None]
  - RENAL FAILURE [None]
  - VENOUS INSUFFICIENCY [None]
  - WEIGHT INCREASED [None]
